FAERS Safety Report 13669161 (Version 1)
Quarter: 2017Q2

REPORT INFORMATION
  Report Type: Spontaneous
  Country: US (occurrence: US)
  Receive Date: 20170620
  Receipt Date: 20170620
  Transmission Date: 20170830
  Serious: Yes (Life-Threatening, Hospitalization, Other)
  Sender: FDA-Public Use
  Company Number: US-AUROBINDO-AUR-APL-2017-35382

PATIENT
  Age: 29 Year
  Sex: Male

DRUGS (2)
  1. CLOZAPINE. [Suspect]
     Active Substance: CLOZAPINE
     Indication: HALLUCINATION, AUDITORY
     Dosage: 500 MG, ONCE A DAY AT BEDTIME
     Route: 065
  2. CLOZAPINE. [Suspect]
     Active Substance: CLOZAPINE
     Indication: BIPOLAR DISORDER
     Dosage: 800 MG, UNK
     Route: 065

REACTIONS (3)
  - Salivary hypersecretion [Unknown]
  - Pneumonia aspiration [Recovering/Resolving]
  - Dehydration [Recovering/Resolving]
